FAERS Safety Report 10738239 (Version 1)
Quarter: 2015Q1

REPORT INFORMATION
  Report Type: Other
  Country: DE (occurrence: DE)
  Receive Date: 20150126
  Receipt Date: 20150126
  Transmission Date: 20150721
  Serious: Yes (Other)
  Sender: FDA-Public Use
  Company Number: DE-MYLANLABS-2015M1001025

PATIENT

DRUGS (1)
  1. OMEPRAZOL 20 MG [Suspect]
     Active Substance: OMEPRAZOLE
     Indication: GASTROOESOPHAGEAL REFLUX DISEASE
     Dosage: 20 MG
     Dates: start: 201408

REACTIONS (4)
  - Alopecia [Not Recovered/Not Resolved]
  - Spinal pain [Unknown]
  - Flushing [Unknown]
  - Myalgia [Recovered/Resolved]

NARRATIVE: CASE EVENT DATE: 2014
